FAERS Safety Report 18366926 (Version 2)
Quarter: 2020Q4

REPORT INFORMATION
  Report Type: Report from Study
  Country: CO (occurrence: CO)
  Receive Date: 20201009
  Receipt Date: 20201015
  Transmission Date: 20210114
  Serious: Yes (Hospitalization)
  Sender: FDA-Public Use
  Company Number: NVSC2020CO261311

PATIENT
  Age: 7 Year
  Sex: Male

DRUGS (1)
  1. REVOLADE [Suspect]
     Active Substance: ELTROMBOPAG
     Indication: IMMUNE THROMBOCYTOPENIA
     Dosage: 25 MG, QD
     Route: 048
     Dates: start: 202008

REACTIONS (7)
  - Petechiae [Recovered/Resolved]
  - Contusion [Unknown]
  - Pain in extremity [Recovering/Resolving]
  - Platelet count decreased [Recovering/Resolving]
  - Abdominal pain upper [Recovering/Resolving]
  - Product supply issue [Unknown]
  - Incorrect dose administered [Unknown]

NARRATIVE: CASE EVENT DATE: 20200911
